FAERS Safety Report 7487920-9 (Version None)
Quarter: 2011Q2

REPORT INFORMATION
  Report Type: 
  Country: None (occurrence: None)
  Receive Date: 20110518
  Receipt Date: 20110504
  Transmission Date: 20111010
  Serious: Yes (Hospitalization, Other)
  Sender: FDA-Public Use
  Company Number: US-JNJFOC-20110504093

PATIENT
  Sex: Male
  Weight: 72.58 kg

DRUGS (9)
  1. FENTANYL [Suspect]
     Indication: PRODUCT USED FOR UNKNOWN INDICATION
     Route: 062
  2. FENTANYL-100 [Suspect]
     Indication: TUMOUR PAIN
     Route: 062
     Dates: start: 20060101, end: 20100101
  3. XANAX [Concomitant]
     Indication: RELAXATION THERAPY
     Route: 048
  4. FENTANYL-100 [Suspect]
     Route: 062
     Dates: start: 20100101, end: 20110301
  5. VIMPAT [Concomitant]
     Indication: CONVULSION
     Route: 048
  6. NEXIUM [Concomitant]
     Indication: GASTROOESOPHAGEAL REFLUX DISEASE
     Route: 048
     Dates: start: 20100101
  7. NEXIUM [Concomitant]
     Indication: HIATUS HERNIA
     Route: 048
     Dates: start: 20100101
  8. CATAPRES [Concomitant]
     Indication: HYPERTENSION
     Route: 048
  9. FENTANYL-100 [Suspect]
     Indication: TUMOUR PAIN
     Route: 062
     Dates: start: 20110301

REACTIONS (6)
  - CONVULSION [None]
  - HYPERCHOLESTEROLAEMIA [None]
  - PRODUCT QUALITY ISSUE [None]
  - LOSS OF CONSCIOUSNESS [None]
  - HEADACHE [None]
  - DRUG INEFFECTIVE [None]
